FAERS Safety Report 10630628 (Version 1)
Quarter: 2014Q4

REPORT INFORMATION
  Report Type: Spontaneous
  Country: US (occurrence: None)
  Receive Date: 20141203
  Receipt Date: 20141203
  Transmission Date: 20150529
  Serious: Yes (Disabling)
  Sender: FDA-Public Use
  Company Number: None

PATIENT
  Age: 31 Year
  Sex: Female
  Weight: 47.63 kg

DRUGS (1)
  1. SIMPONI [Suspect]
     Active Substance: GOLIMUMAB
     Indication: RHEUMATOID ARTHRITIS
     Dosage: 50 MG, ONCE MONTHLY, GIVEN INTO/UNDER THE SKIN
     Dates: start: 20140928, end: 20141028

REACTIONS (7)
  - Pregnancy [None]
  - Muscular weakness [None]
  - Dysgraphia [None]
  - Maternal exposure before pregnancy [None]
  - Therapy cessation [None]
  - Dysarthria [None]
  - Grip strength decreased [None]

NARRATIVE: CASE EVENT DATE: 20140928
